FAERS Safety Report 25106642 (Version 1)
Quarter: 2025Q1

REPORT INFORMATION
  Report Type: Spontaneous
  Country: US (occurrence: US)
  Receive Date: 20250321
  Receipt Date: 20250321
  Transmission Date: 20250408
  Serious: No
  Sender: EISAI
  Company Number: US-Eisai-EC-2025-185032

PATIENT
  Sex: Female

DRUGS (2)
  1. LENVIMA [Suspect]
     Active Substance: LENVATINIB
     Indication: Renal cell carcinoma
  2. KEYTRUDA [Suspect]
     Active Substance: PEMBROLIZUMAB
     Indication: Renal cell carcinoma

REACTIONS (2)
  - Gingival recession [Recovering/Resolving]
  - Gingival swelling [Recovering/Resolving]

NARRATIVE: CASE EVENT DATE: 20250101
